FAERS Safety Report 13521027 (Version 1)
Quarter: 2017Q2

REPORT INFORMATION
  Report Type: Spontaneous
  Country: JP (occurrence: JP)
  Receive Date: 20170508
  Receipt Date: 20170508
  Transmission Date: 20170830
  Serious: Yes (Other)
  Sender: FDA-Public Use
  Company Number: JP-ORION CORPORATION ORION PHARMA-ENT 2017-0075

PATIENT
  Sex: Female

DRUGS (3)
  1. COMTAN [Suspect]
     Active Substance: ENTACAPONE
     Dosage: STRENGTH: 100 MG
     Route: 048
     Dates: end: 20170426
  2. COMTAN [Suspect]
     Active Substance: ENTACAPONE
     Route: 048
  3. MENESIT [Concomitant]
     Active Substance: CARBIDOPA\LEVODOPA
     Dosage: STRENGTH: 100 MG
     Route: 065

REACTIONS (6)
  - Feeling abnormal [Unknown]
  - Condition aggravated [Unknown]
  - Immobile [Unknown]
  - Dyskinesia [Unknown]
  - Muscular weakness [Unknown]
  - Hypotension [Unknown]

NARRATIVE: CASE EVENT DATE: 20170426
